FAERS Safety Report 5628669-4 (Version None)
Quarter: 2008Q1

REPORT INFORMATION
  Report Type: 
  Country: None (occurrence: None)
  Receive Date: 20080215
  Receipt Date: 20080205
  Transmission Date: 20080703
  Serious: Yes (Hospitalization, Other)
  Sender: FDA-Public Use
  Company Number: US-PFIZER INC-2008011985

PATIENT
  Sex: Female

DRUGS (3)
  1. DILANTIN [Suspect]
     Indication: CONVULSION
  2. DILANTIN [Suspect]
     Dosage: TEXT:100MG TID EVERY DAY TDD:300MG
  3. IRON [Concomitant]

REACTIONS (2)
  - ASTHENIA [None]
  - TRANSFUSION [None]
